FAERS Safety Report 10456047 (Version 1)
Quarter: 2014Q3

REPORT INFORMATION
  Report Type: Spontaneous
  Country: US (occurrence: None)
  Receive Date: 20140819
  Receipt Date: 20140819
  Transmission Date: 20150326
  Serious: Yes (Other)
  Sender: FDA-Public Use
  Company Number: ALCN2013US000556

PATIENT
  Age: 63 Year
  Sex: Female
  Weight: 56.2 kg

DRUGS (8)
  1. DUREZOL [Suspect]
     Active Substance: DIFLUPREDNATE
     Indication: PREOPERATIVE CARE
     Dosage: 1 GTT, TID, RIGHT ETE - OPH
     Route: 047
     Dates: start: 20130616, end: 20130627
  2. TESTOSTERONE (TESTOSTERONE) [Concomitant]
  3. LEVOTHYROXINE SODIUM+ POTASSIUM IODID (NGX) (LEVOTHYROXINE SODIUM, POTASSIUM IODIDE) UNKNOWN [Concomitant]
  4. ESTROGEN (ESTROGENS) UNKNOWN [Concomitant]
  5. BESIVANCE//BESIFLOXACIN HYDROCHLORIDE [Concomitant]
  6. PROGESTERONE (PROGESTERONE) [Concomitant]
  7. BROMFENAC (BROMFENAC) UNKNOWN [Concomitant]
  8. DUREZOL [Suspect]
     Active Substance: DIFLUPREDNATE
     Indication: POSTOPERATIVE CARE
     Dosage: 1 GTT, TID, RIGHT ETE - OPH
     Route: 047
     Dates: start: 20130616, end: 20130627

REACTIONS (5)
  - Eye pain [None]
  - Visual acuity reduced [None]
  - Vision blurred [None]
  - Cystoid macular oedema [None]
  - Eye irritation [None]

NARRATIVE: CASE EVENT DATE: 20130615
